FAERS Safety Report 9610689 (Version 3)
Quarter: 2014Q2

REPORT INFORMATION
  Report Type: Report from Study
  Country: JP (occurrence: JP)
  Receive Date: 20131009
  Receipt Date: 20140425
  Transmission Date: 20141212
  Serious: Yes (Life-Threatening, Disabling)
  Sender: FDA-Public Use
  Company Number: JP-SA-2013SA100133

PATIENT
  Age: 75 Year
  Sex: Male
  Weight: 65 kg

DRUGS (26)
  1. THYMOGLOBULINE [Suspect]
     Indication: APLASTIC ANAEMIA
     Dosage: ON 14-MAR-2011, THE INITIAL DOSE OF THYMOGLOBULINE AT 225.5 MG WAS ADMINISTERED OVER 18 HOURS
     Route: 042
     Dates: start: 20110314, end: 20110318
  2. ROXATIDINE ACETATE HYDROCHLORIDE [Concomitant]
     Indication: PROPHYLAXIS AGAINST GASTROINTESTINAL ULCER
     Dates: start: 20110314, end: 20110624
  3. CONIEL [Concomitant]
     Indication: HYPERTENSION
     Dates: start: 20110825, end: 20110930
  4. SELBEX [Concomitant]
     Indication: GASTRITIS PROPHYLAXIS
     Dates: start: 20110420, end: 20110525
  5. PRIMOBOLAN [Concomitant]
     Indication: APLASTIC ANAEMIA
     Dates: start: 20110825, end: 20110930
  6. PREDNISOLONE [Concomitant]
     Indication: APLASTIC ANAEMIA
     Dates: start: 20110405, end: 20110603
  7. NEORAL [Concomitant]
     Indication: APLASTIC ANAEMIA
     Dates: start: 20110301, end: 20110828
  8. MEDET [Concomitant]
     Indication: DIABETES MELLITUS
     Dates: start: 20110301, end: 20110624
  9. VALTREX [Concomitant]
     Indication: INFECTION PROPHYLAXIS
     Dates: start: 20110315, end: 20110726
  10. ADONA [Concomitant]
     Indication: APLASTIC ANAEMIA
     Dates: start: 20110301, end: 20110624
  11. SEIBULE [Concomitant]
     Indication: DIABETES MELLITUS
     Dates: start: 20110825, end: 20110930
  12. IRBETAN [Concomitant]
     Indication: HYPERTENSION
     Dates: start: 20110801, end: 20110930
  13. DEFERASIROX [Concomitant]
     Indication: IRON OVERLOAD
     Dates: start: 20110609, end: 20110930
  14. CRAVIT [Concomitant]
     Indication: INFECTION PROPHYLAXIS
     Dates: start: 20110311, end: 20110710
  15. LIMAPROST ALFADEX [Concomitant]
     Indication: THROMBOANGIITIS OBLITERANS
     Dates: start: 20110301, end: 20110930
  16. GLACTIV [Concomitant]
     Indication: DIABETES MELLITUS
     Dates: start: 20110301, end: 20110731
  17. CINAL [Concomitant]
     Indication: HAEMORRHAGE SUBCUTANEOUS
     Dates: start: 20110301, end: 20110930
  18. ACETAMINOPHEN W/CAFF./PROMETHAZINE/SALICYLAM. [Concomitant]
     Indication: NASOPHARYNGITIS
     Dates: start: 20110525, end: 20110528
  19. PURSENNID [Concomitant]
     Indication: CONSTIPATION
     Dates: start: 20110501, end: 20110924
  20. FAMOTIDINE [Concomitant]
     Indication: PROPHYLAXIS AGAINST GASTROINTESTINAL ULCER
     Dates: start: 20110628, end: 20110930
  21. METGLUCO [Concomitant]
     Indication: DIABETES MELLITUS
     Dates: start: 20110628, end: 20110930
  22. JANUVIA [Concomitant]
     Indication: DIABETES MELLITUS
     Dates: start: 20110801, end: 20110930
  23. VIGAMOX [Concomitant]
     Indication: CONJUNCTIVITIS
     Dates: start: 20110307, end: 20110915
  24. FLUMETHOLON [Concomitant]
     Indication: CONJUNCTIVITIS
     Dosage: STRENGTH: 0.1%
     Dates: start: 20110829, end: 20110915
  25. POVIDONE IODINE [Concomitant]
     Dosage: STRENGTH: 7%
     Dates: start: 20110305, end: 20110305
  26. BETAMETHASONE SODIUM PHOSPHATE [Concomitant]
     Indication: CONJUNCTIVITIS
     Dates: start: 20110625, end: 20110806

REACTIONS (6)
  - Glaucoma [Not Recovered/Not Resolved]
  - Generalised oedema [Not Recovered/Not Resolved]
  - Diabetic retinopathy [Not Recovered/Not Resolved]
  - Retinal haemorrhage [Not Recovered/Not Resolved]
  - Diabetic nephropathy [Not Recovered/Not Resolved]
  - Cardiac failure [Not Recovered/Not Resolved]
